FAERS Safety Report 7402659-3 (Version None)
Quarter: 2011Q1

REPORT INFORMATION
  Report Type: 
  Country: None (occurrence: None)
  Receive Date: 20110331
  Receipt Date: 20110323
  Transmission Date: 20110831
  Serious: Yes (Hospitalization, Other)
  Sender: FDA-Public Use
  Company Number: 2009AC000392

PATIENT
  Age: 43 Year
  Sex: Male

DRUGS (30)
  1. DIGOXIN [Suspect]
     Dosage: 0.125 MG;QD; PO
     Route: 048
     Dates: start: 20070901, end: 20080122
  2. PREDNISONE [Concomitant]
  3. LISINOPRIL [Concomitant]
  4. POTASSIUM CHLORIDE [Concomitant]
  5. FUROSEMIDE [Concomitant]
  6. XOPENEX [Concomitant]
  7. PROTONIX [Concomitant]
  8. ALBUTEROL [Concomitant]
  9. ATROVENT [Concomitant]
  10. KADIAN [Concomitant]
  11. DIGOXIN [Suspect]
     Dosage: 0.250 MG;QD; PO
     Route: 048
     Dates: start: 20070822, end: 20070901
  12. XANAX [Concomitant]
  13. LEVAQUIN [Concomitant]
  14. LASIX [Concomitant]
  15. MS CONTIN [Concomitant]
  16. REGLAN [Concomitant]
  17. AMOXICILLIN [Concomitant]
  18. DIOVAN [Concomitant]
  19. COREG [Concomitant]
  20. MUCINEX [Concomitant]
  21. HYDROCODONE [Concomitant]
  22. TRAMADOL [Concomitant]
  23. CAPTOPRIL [Concomitant]
  24. ALDACTONE [Concomitant]
  25. LEXAPRO [Concomitant]
  26. LYRICA [Concomitant]
  27. DIGOXIN [Suspect]
     Indication: CARDIAC FAILURE CONGESTIVE
     Dosage: 125 MCG;QD; PO
     Route: 048
     Dates: start: 20070815, end: 20070821
  28. VIAGRA [Concomitant]
  29. VANCOMYCIN [Concomitant]
  30. LINICA [Concomitant]

REACTIONS (19)
  - CHRONIC OBSTRUCTIVE PULMONARY DISEASE [None]
  - RENAL FAILURE [None]
  - CELLULITIS [None]
  - INJURY [None]
  - DRUG SCREEN POSITIVE [None]
  - CARDIAC FAILURE CONGESTIVE [None]
  - ABSCESS [None]
  - VENTRICULAR EXTRASYSTOLES [None]
  - ECONOMIC PROBLEM [None]
  - CONDITION AGGRAVATED [None]
  - VENTRICULAR TACHYCARDIA [None]
  - STAPHYLOCOCCAL SKIN INFECTION [None]
  - ARTHROPOD BITE [None]
  - BRONCHITIS [None]
  - ANXIETY [None]
  - HYPOTENSION [None]
  - ERECTILE DYSFUNCTION [None]
  - INTERSTITIAL LUNG DISEASE [None]
  - SURGERY [None]
